FAERS Safety Report 12811181 (Version 1)
Quarter: 2016Q4

REPORT INFORMATION
  Report Type: Spontaneous
  Country: US (occurrence: US)
  Receive Date: 20161004
  Receipt Date: 20161004
  Transmission Date: 20170207
  Serious: Yes (Other)
  Sender: FDA-Public Use
  Company Number: None

PATIENT
  Age: 76 Year
  Sex: Female
  Weight: 55 kg

DRUGS (5)
  1. RIFAXIMIN [Concomitant]
     Active Substance: RIFAXIMIN
  2. LORAZEPAM. [Concomitant]
     Active Substance: LORAZEPAM
  3. DIVALPROEX SODIUM. [Suspect]
     Active Substance: DIVALPROEX SODIUM
     Indication: SEIZURE
     Route: 048
     Dates: start: 20160701, end: 20161004
  4. MORPHINE SULFATE. [Concomitant]
     Active Substance: MORPHINE SULFATE
  5. ACETAMINOPHEN. [Concomitant]
     Active Substance: ACETAMINOPHEN

REACTIONS (4)
  - Nausea [None]
  - Decreased appetite [None]
  - Weight decreased [None]
  - Abdominal pain [None]

NARRATIVE: CASE EVENT DATE: 20161004
